FAERS Safety Report 10466554 (Version 1)
Quarter: 2014Q3

REPORT INFORMATION
  Report Type: Spontaneous
  Country: FR (occurrence: None)
  Receive Date: 20140918
  Receipt Date: 20140918
  Transmission Date: 20150326
  Serious: Yes (Other)
  Sender: FDA-Public Use
  Company Number: FR-20140306

PATIENT
  Age: 29 Year
  Sex: Female

DRUGS (1)
  1. DOTAREM [Suspect]
     Active Substance: GADOTERATE MEGLUMINE
     Indication: NUCLEAR MAGNETIC RESONANCE IMAGING BRAIN
     Dosage: 15 ML (15 ML, 1 IN 1 D), UNKNOWN
     Dates: start: 20140902, end: 20140902

REACTIONS (7)
  - Dyspnoea [None]
  - Nausea [None]
  - Wheezing [None]
  - Type I hypersensitivity [None]
  - Dizziness [None]
  - Chills [None]
  - Hypothermia [None]

NARRATIVE: CASE EVENT DATE: 20140902
